FAERS Safety Report 5277809-8 (Version None)
Quarter: 2007Q1

REPORT INFORMATION
  Report Type: 
  Country: None (occurrence: None)
  Receive Date: 20070327
  Receipt Date: 20070315
  Transmission Date: 20070707
  Serious: Yes (Other)
  Sender: FDA-Public Use
  Company Number: FR-PFIZER INC-2007002159

PATIENT
  Age: 56 Year
  Sex: Female

DRUGS (1)
  1. ARTHROTEC [Suspect]
     Dates: start: 20061201, end: 20061201

REACTIONS (6)
  - ABDOMINAL PAIN UPPER [None]
  - BLOOD ALKALINE PHOSPHATASE INCREASED [None]
  - EOSINOPHILIA [None]
  - LEUKOPENIA [None]
  - NEUTROPENIA [None]
  - TRANSAMINASES INCREASED [None]
